FAERS Safety Report 11966514 (Version 1)
Quarter: 2016Q1

REPORT INFORMATION
  Report Type: Report from Study
  Country: US (occurrence: US)
  Receive Date: 20160127
  Receipt Date: 20160127
  Transmission Date: 20160526
  Serious: Yes (Hospitalization)
  Sender: FDA-Public Use
  Company Number: US-JNJFOC-20160115725

PATIENT
  Sex: Female
  Weight: 83.46 kg

DRUGS (2)
  1. REMICADE [Suspect]
     Active Substance: INFLIXIMAB
     Indication: ARTHRITIS
     Route: 042
  2. REMICADE [Suspect]
     Active Substance: INFLIXIMAB
     Indication: BONE EROSION
     Route: 042

REACTIONS (14)
  - Nephrectomy [Unknown]
  - Kidney infection [Unknown]
  - Micturition disorder [Unknown]
  - Product use issue [Unknown]
  - Renal impairment [Unknown]
  - Abdominal distension [Unknown]
  - Urostomy complication [Unknown]
  - Adverse event [Unknown]
  - Off label use [Unknown]
  - Cough [Unknown]
  - Feeling abnormal [Unknown]
  - Kidney fibrosis [Unknown]
  - Blood urine present [Unknown]
  - Urine abnormality [Unknown]

NARRATIVE: CASE EVENT DATE: 2015
